FAERS Safety Report 6861405-2 (Version None)
Quarter: 2010Q3

REPORT INFORMATION
  Report Type: 
  Country: None (occurrence: None)
  Receive Date: 20100716
  Receipt Date: 20100709
  Transmission Date: 20110219
  Serious: Yes (Other)
  Sender: FDA-Public Use
  Company Number: US-1182334

PATIENT
  Sex: Male

DRUGS (3)
  1. VIGAMOX [Suspect]
     Indication: CATARACT OPERATION
     Dosage: (TID OPHTHALMIC)
     Route: 047
     Dates: start: 20100510, end: 20100607
  2. NEVANAC [Suspect]
     Indication: CATARACT OPERATION
     Dosage: (TID OPHTHALMIC)
     Route: 047
     Dates: start: 20100510, end: 20100607
  3. OMNIPRED [Suspect]
     Indication: CATARACT OPERATION
     Dosage: (TID OPHTHALMIC)
     Route: 047
     Dates: start: 20100510, end: 20100607

REACTIONS (3)
  - EYE INFECTION [None]
  - VISION BLURRED [None]
  - VITREOUS FLOATERS [None]
